FAERS Safety Report 10778908 (Version 2)
Quarter: 2015Q3

REPORT INFORMATION
  Report Type: Spontaneous
  Country: US (occurrence: US)
  Receive Date: 20150210
  Receipt Date: 20150817
  Transmission Date: 20151125
  Serious: Yes (Hospitalization, Other)
  Sender: FDA-Public Use
  Company Number: US-AMGEN-USASP2015011550

PATIENT
  Age: 56 Year
  Sex: Female

DRUGS (1)
  1. ENBREL [Suspect]
     Active Substance: ETANERCEPT
     Indication: RHEUMATOID ARTHRITIS
     Dosage: 50 MG, QWK
     Route: 065
     Dates: start: 2013

REACTIONS (14)
  - Brain injury [Not Recovered/Not Resolved]
  - Influenza [Recovered/Resolved]
  - Visual impairment [Recovered/Resolved]
  - Memory impairment [Not Recovered/Not Resolved]
  - Cerebrovascular accident [Recovered/Resolved]
  - Headache [Not Recovered/Not Resolved]
  - Respiratory tract congestion [Unknown]
  - Sinusitis [Unknown]
  - Injection site pruritus [Unknown]
  - Eye disorder [Recovered/Resolved]
  - Upper-airway cough syndrome [Unknown]
  - Unresponsive to stimuli [Recovered/Resolved]
  - Injection site pain [Not Recovered/Not Resolved]
  - Injection site swelling [Unknown]

NARRATIVE: CASE EVENT DATE: 2014
